FAERS Safety Report 25405164 (Version 1)
Quarter: 2025Q2

REPORT INFORMATION
  Report Type: Spontaneous
  Country: AU (occurrence: AU)
  Receive Date: 20250606
  Receipt Date: 20250606
  Transmission Date: 20250716
  Serious: Yes (Other)
  Sender: NOVO NORDISK
  Company Number: AU-NOVOPROD-1447661

PATIENT
  Age: 53 Year
  Sex: Male

DRUGS (3)
  1. NOVORAPID [Suspect]
     Active Substance: INSULIN ASPART
     Indication: Type 1 diabetes mellitus
  2. PROTAPHANE [Concomitant]
     Active Substance: INSULIN HUMAN
     Indication: Type 1 diabetes mellitus
  3. INSULIN NOS [Suspect]
     Active Substance: INSULIN NOS
     Indication: Type 1 diabetes mellitus

REACTIONS (2)
  - Renal transplant [Unknown]
  - Diabetes mellitus inadequate control [Unknown]
